FAERS Safety Report 9373316 (Version 1)
Quarter: 2013Q2

REPORT INFORMATION
  Report Type: Spontaneous
  Country: FR (occurrence: FR)
  Receive Date: 20130627
  Receipt Date: 20130627
  Transmission Date: 20140414
  Serious: Yes (Hospitalization)
  Sender: FDA-Public Use
  Company Number: FR-GLAXOSMITHKLINE-B0883173A

PATIENT
  Age: 55 Year
  Sex: Female

DRUGS (13)
  1. ZELITREX [Suspect]
     Route: 048
     Dates: start: 20130215, end: 20130329
  2. CANCIDAS [Suspect]
     Indication: PRODUCT USED FOR UNKNOWN INDICATION
     Route: 042
     Dates: start: 20130307, end: 20130325
  3. VANCOMYCINE [Suspect]
     Indication: STAPHYLOCOCCAL SEPSIS
     Route: 042
     Dates: start: 20130308, end: 20130324
  4. FUNGIZONE [Suspect]
     Indication: PRODUCT USED FOR UNKNOWN INDICATION
     Route: 065
     Dates: start: 20130215, end: 20130326
  5. PIPERACILLINE [Suspect]
     Indication: STAPHYLOCOCCAL SEPSIS
     Route: 065
     Dates: start: 20130215, end: 20130324
  6. TAZOBACTAM [Suspect]
     Indication: STAPHYLOCOCCAL SEPSIS
     Route: 065
     Dates: start: 20130215, end: 20130324
  7. ASPARAGINASE [Suspect]
     Indication: ACUTE LYMPHOCYTIC LEUKAEMIA
     Route: 042
     Dates: start: 20130313, end: 20130323
  8. DAUNORUBICINE [Concomitant]
     Indication: ACUTE LYMPHOCYTIC LEUKAEMIA
  9. ENDOXAN [Concomitant]
     Indication: ACUTE LYMPHOCYTIC LEUKAEMIA
  10. VINCRISTINE [Concomitant]
     Indication: ACUTE LYMPHOCYTIC LEUKAEMIA
     Dates: end: 20130315
  11. ARACYTINE [Concomitant]
     Indication: ACUTE LYMPHOCYTIC LEUKAEMIA
  12. METHOTREXATE [Concomitant]
     Indication: ACUTE LYMPHOCYTIC LEUKAEMIA
  13. CORTICOIDS [Concomitant]
     Dates: start: 20130222

REACTIONS (1)
  - Rash maculo-papular [Recovering/Resolving]
